FAERS Safety Report 6171082-4 (Version None)
Quarter: 2009Q2

REPORT INFORMATION
  Report Type: 
  Country: None (occurrence: None)
  Receive Date: 20090429
  Receipt Date: 20090417
  Transmission Date: 20091009
  Serious: Yes (Hospitalization, Other)
  Sender: FDA-Public Use
  Company Number: PHHY2009JP12397

PATIENT
  Sex: Female
  Weight: 43 kg

DRUGS (9)
  1. COMTAN [Suspect]
     Indication: PARKINSON'S DISEASE
     Dosage: 600 MG/DAY
     Route: 048
     Dates: start: 20090313, end: 20090330
  2. COMTAN [Suspect]
     Dosage: 300 MG/DAY
     Route: 048
     Dates: start: 20090331, end: 20090403
  3. NEODOPASOL [Concomitant]
     Indication: PARKINSON'S DISEASE
     Dosage: 750 MG
     Route: 048
     Dates: start: 20060101
  4. ARTANE [Concomitant]
     Indication: PARKINSON'S DISEASE
     Dosage: 3 MG
     Route: 048
     Dates: start: 20060101
  5. CABASER [Concomitant]
     Indication: PARKINSON'S DISEASE
     Dosage: 2 MG
     Route: 048
     Dates: start: 20060101
  6. DEPAS [Concomitant]
     Indication: INSOMNIA
     Dosage: 0.5 MG
     Route: 048
     Dates: start: 20090327
  7. LENDORMIN [Concomitant]
     Indication: INSOMNIA
     Dosage: 0.25 MG
     Route: 048
     Dates: start: 20090312
  8. CONTOMIN [Concomitant]
     Indication: INSOMNIA
     Dosage: 25 MG
     Route: 048
     Dates: start: 20090221, end: 20090326
  9. ROHYPNOL [Concomitant]
     Indication: INSOMNIA
     Dosage: 2 MG
     Route: 048
     Dates: start: 20090221, end: 20090311

REACTIONS (16)
  - ACTIVITIES OF DAILY LIVING IMPAIRED [None]
  - ANXIETY [None]
  - BACTERIAL INFECTION [None]
  - BLOOD ALBUMIN DECREASED [None]
  - BLOOD CHLORIDE DECREASED [None]
  - BLOOD SODIUM DECREASED [None]
  - C-REACTIVE PROTEIN INCREASED [None]
  - CONFUSIONAL STATE [None]
  - DELUSION [None]
  - HAEMATOCRIT DECREASED [None]
  - HAEMOGLOBIN DECREASED [None]
  - HALLUCINATIONS, MIXED [None]
  - INSOMNIA [None]
  - RED BLOOD CELL COUNT DECREASED [None]
  - RESTLESSNESS [None]
  - SPEECH DISORDER [None]
